FAERS Safety Report 16308853 (Version 2)
Quarter: 2019Q2

REPORT INFORMATION
  Report Type: Spontaneous
  Country: GB (occurrence: GB)
  Receive Date: 20190514
  Receipt Date: 20190518
  Transmission Date: 20190711
  Serious: Yes (Life-Threatening, Hospitalization, Other)
  Sender: FDA-Public Use
  Company Number: GB-AUROBINDO-AUR-APL-2019-026398

PATIENT

DRUGS (2)
  1. OLANZAPINE. [Suspect]
     Active Substance: OLANZAPINE
     Indication: SCHIZOPHRENIA
     Dosage: UNK
     Route: 065
  2. METHADONE [Suspect]
     Active Substance: METHADONE HYDROCHLORIDE
     Indication: SCHIZOPHRENIA
     Dosage: UNK
     Route: 065

REACTIONS (9)
  - Hyperglycaemic hyperosmolar nonketotic syndrome [Recovered/Resolved]
  - Type 2 diabetes mellitus [Recovering/Resolving]
  - Coma [Recovered/Resolved]
  - Weight increased [Unknown]
  - Insulin resistance [Recovered/Resolved]
  - Hyperglycaemia [Recovered/Resolved]
  - Blood sodium increased [Unknown]
  - Blood glucose increased [Unknown]
  - Loss of consciousness [Unknown]
